FAERS Safety Report 13587081 (Version 1)
Quarter: 2017Q2

REPORT INFORMATION
  Report Type: Spontaneous
  Country: JP (occurrence: JP)
  Receive Date: 20170526
  Receipt Date: 20170526
  Transmission Date: 20170830
  Serious: Yes (Other)
  Sender: FDA-Public Use
  Company Number: JP-WARNER CHILCOTT-2016-001694

PATIENT
  Age: 83 Year
  Sex: Female

DRUGS (2)
  1. RISEDRONATE [Suspect]
     Active Substance: RISEDRONATE SODIUM
     Indication: OSTEOPOROSIS
     Dosage: UNKNOWN
     Route: 048
  2. PROTON PUMP INHIBITORS [Concomitant]
     Active Substance: UNSPECIFIED INGREDIENT

REACTIONS (7)
  - Bone formation decreased [Recovered/Resolved]
  - Atypical femur fracture [Recovered/Resolved]
  - Fall [Recovered/Resolved]
  - Fracture nonunion [Recovered/Resolved]
  - Resorption bone increased [Recovered/Resolved]
  - Pain in extremity [Recovered/Resolved]
  - Pseudarthrosis [Recovered/Resolved]
